FAERS Safety Report 9981221 (Version 1)
Quarter: 2014Q1

REPORT INFORMATION
  Report Type: Report from Study
  Country: US (occurrence: US)
  Receive Date: 20140307
  Receipt Date: 20140307
  Transmission Date: 20141002
  Serious: Yes (Death)
  Sender: FDA-Public Use
  Company Number: US-ROCHE-1330126

PATIENT
  Sex: Female
  Weight: 55.84 kg

DRUGS (8)
  1. ACTEMRA [Suspect]
     Indication: RHEUMATOID ARTHRITIS
     Route: 042
  2. METHYLPREDNISOLONE ACETATE [Concomitant]
     Route: 042
  3. METHYLPREDNISOLONE ACETATE [Concomitant]
     Route: 042
  4. TRIAMCINOLONE ACETONIDE [Concomitant]
     Route: 042
  5. TYLENOL [Concomitant]
     Route: 048
  6. CLARITIN [Concomitant]
     Route: 048
  7. NORMAL SALINE [Concomitant]
     Dosage: 250 CC
     Route: 042
  8. TORADOL [Concomitant]
     Route: 042

REACTIONS (4)
  - Death [Fatal]
  - Petechiae [Unknown]
  - Rash [Unknown]
  - Skin mass [Unknown]
